FAERS Safety Report 9133322 (Version 3)
Quarter: 2013Q2

REPORT INFORMATION
  Report Type: Spontaneous
  Country: TR (occurrence: TR)
  Receive Date: 20130301
  Receipt Date: 20130418
  Transmission Date: 20140414
  Serious: Yes (Hospitalization)
  Sender: FDA-Public Use
  Company Number: TR-ASTRAZENECA-2013SE12166

PATIENT
  Age: 52 Year
  Sex: Male

DRUGS (2)
  1. VANDETANIB [Suspect]
     Indication: THYROID CANCER
     Route: 048
     Dates: start: 201301, end: 20130221
  2. LEVOTIRON [Concomitant]
     Indication: HYPOTHYROIDISM

REACTIONS (4)
  - Hyperaesthesia [Recovering/Resolving]
  - Melaena [Recovering/Resolving]
  - Dermatitis [Recovering/Resolving]
  - Angina pectoris [Unknown]
